FAERS Safety Report 16994709 (Version 1)
Quarter: 2019Q4

REPORT INFORMATION
  Report Type: Spontaneous
  Country: JP (occurrence: JP)
  Receive Date: 20191105
  Receipt Date: 20191105
  Transmission Date: 20200122
  Serious: Yes (Death, Other)
  Sender: FDA-Public Use
  Company Number: JP-MEDEXUS PHARMA, INC.-2019MED00241

PATIENT
  Age: 85 Year
  Sex: Female

DRUGS (2)
  1. LEUCOVORIN. [Concomitant]
     Active Substance: LEUCOVORIN
     Route: 065
  2. METHOTREXATE. [Suspect]
     Active Substance: METHOTREXATE
     Indication: CENTRAL NERVOUS SYSTEM LYMPHOMA
     Dosage: 3.5 G/M2, ONCE
     Route: 042

REACTIONS (4)
  - Hypernatraemia [Unknown]
  - Disseminated intravascular coagulation [Unknown]
  - Toxicity to various agents [Fatal]
  - Thrombocytopenia [Unknown]
